FAERS Safety Report 18600824 (Version 1)
Quarter: 2020Q4

REPORT INFORMATION
  Report Type: Spontaneous
  Country: MY (occurrence: MY)
  Receive Date: 20201210
  Receipt Date: 20201210
  Transmission Date: 20210114
  Serious: Yes (Other)
  Sender: FDA-Public Use
  Company Number: MY-B.I. PHARMACEUTICALS,INC./RIDGEFIELD-2020-BI-064617

PATIENT
  Age: 82 Year
  Sex: Male
  Weight: 45 kg

DRUGS (2)
  1. PRADAXA [Suspect]
     Active Substance: DABIGATRAN ETEXILATE MESYLATE
     Dosage: 110MG OD
     Dates: start: 202011
  2. PRADAXA [Suspect]
     Active Substance: DABIGATRAN ETEXILATE MESYLATE
     Indication: ATRIAL FIBRILLATION
     Dosage: 110MG BD
     Route: 065
     Dates: start: 202008, end: 202011

REACTIONS (2)
  - Rectal haemorrhage [Recovered/Resolved]
  - Proctitis [Recovering/Resolving]

NARRATIVE: CASE EVENT DATE: 202011
